FAERS Safety Report 16087086 (Version 1)
Quarter: 2019Q1

REPORT INFORMATION
  Report Type: Spontaneous
  Country: US (occurrence: US)
  Receive Date: 20190319
  Receipt Date: 20190319
  Transmission Date: 20190418
  Serious: Yes (Other)
  Sender: FDA-Public Use
  Company Number: US-AMGEN-USASL2019040477

PATIENT
  Age: 37 Year
  Sex: Female

DRUGS (1)
  1. AIMOVIG [Suspect]
     Active Substance: ERENUMAB-AOOE
     Indication: MIGRAINE WITHOUT AURA
     Dosage: 70 MILLIGRAM, QMO
     Route: 058

REACTIONS (5)
  - Gastric disorder [Unknown]
  - Insomnia [Unknown]
  - Suicidal ideation [Unknown]
  - Paranasal sinus discomfort [Unknown]
  - Affect lability [Unknown]
